FAERS Safety Report 4699369-2 (Version None)
Quarter: 2005Q2

REPORT INFORMATION
  Report Type: 
  Country: None (occurrence: None)
  Receive Date: 20050622
  Receipt Date: 20050606
  Transmission Date: 20051028
  Serious: Yes (Other)
  Sender: FDA-Public Use
  Company Number: 2005-BP-09881RO

PATIENT
  Age: 71 Year
  Sex: Male

DRUGS (7)
  1. LEUCOVORIN CALCIUM [Suspect]
     Indication: COLON CANCER
     Dosage: 75 MG/DAY
     Dates: start: 20041208, end: 20041210
  2. UFT [Suspect]
     Indication: COLON CANCER
     Dosage: 6 CAPSULES/DAY
     Dates: start: 20041208, end: 20041210
  3. MAGNESIUM OXIDE            (MAGNESIUM OXIDE) [Concomitant]
  4. GASMOTIN             (MOSAPRIDE CITRATE) [Concomitant]
  5. DAI-KENCHU-TO [Concomitant]
  6. GLYBURIDE [Concomitant]
  7. PRAVASTATIN [Concomitant]

REACTIONS (3)
  - ALANINE AMINOTRANSFERASE INCREASED [None]
  - ASPARTATE AMINOTRANSFERASE INCREASED [None]
  - LIVER DISORDER [None]
